FAERS Safety Report 13707435 (Version 3)
Quarter: 2017Q3

REPORT INFORMATION
  Report Type: Report from Study
  Country: US (occurrence: US)
  Receive Date: 20170630
  Receipt Date: 20170915
  Transmission Date: 20171127
  Serious: No
  Sender: FDA-Public Use
  Company Number: PHEH2017US019639

PATIENT
  Age: 52 Year
  Sex: Male
  Weight: 120.2 kg

DRUGS (1)
  1. GILENYA [Suspect]
     Active Substance: FINGOLIMOD HYDROCHLORIDE
     Indication: MULTIPLE SCLEROSIS
     Dosage: 0.5 MG, QD
     Route: 048
     Dates: start: 20170621

REACTIONS (7)
  - Feeling abnormal [Not Recovered/Not Resolved]
  - Vertigo [Unknown]
  - Tanning [Not Recovered/Not Resolved]
  - Disorientation [Not Recovered/Not Resolved]
  - Seasonal allergy [Unknown]
  - Depressed mood [Not Recovered/Not Resolved]
  - Fatigue [Unknown]

NARRATIVE: CASE EVENT DATE: 20170622
